FAERS Safety Report 22044191 (Version 1)
Quarter: 2023Q1

REPORT INFORMATION
  Report Type: Spontaneous
  Country: US (occurrence: None)
  Receive Date: 20230227
  Receipt Date: 20230227
  Transmission Date: 20230418
  Serious: Yes (Hospitalization)
  Sender: FDA-Public Use
  Company Number: None

PATIENT
  Age: 81 Year
  Sex: Female
  Weight: 83.8 kg

DRUGS (6)
  1. CAPECITABINE [Suspect]
     Active Substance: CAPECITABINE
     Indication: Rectal cancer
     Dosage: 1000MG TWICE DAILY ORAL?
     Route: 048
     Dates: start: 202104, end: 20230210
  2. DAILYVITAMIN [Concomitant]
  3. FENTANYL [Concomitant]
     Active Substance: FENTANYL
  4. LIISNOPRIL [Concomitant]
  5. MORPHINE SULFATE [Concomitant]
     Active Substance: MORPHINE SULFATE
  6. ONDANSETRON [Concomitant]
     Active Substance: ONDANSETRON

REACTIONS (4)
  - Illness [None]
  - Vomiting [None]
  - Therapy cessation [None]
  - Feeding disorder [None]
